FAERS Safety Report 8535138-0 (Version None)
Quarter: 2012Q3

REPORT INFORMATION
  Report Type: 
  Country: None (occurrence: None)
  Receive Date: 20120724
  Receipt Date: 20120718
  Transmission Date: 20120928
  Serious: Yes (Other)
  Sender: FDA-Public Use
  Company Number: IE-PFIZER INC-2012174394

PATIENT
  Age: 55 Year
  Sex: Female

DRUGS (8)
  1. VARENICLINE TARTRATE [Suspect]
     Indication: EX-TOBACCO USER
     Dosage: 1 MG, 2X/DAY
     Route: 048
     Dates: start: 20120604, end: 20120612
  2. MELOXICAM [Concomitant]
     Indication: ARTHRALGIA
     Dosage: 15 MG, 1X/DAY
     Route: 048
     Dates: start: 20120516, end: 20120610
  3. CLARITHROMYCIN [Concomitant]
     Indication: LOWER RESPIRATORY TRACT INFECTION
     Dosage: 500 MG, 1X/DAY
     Route: 048
     Dates: start: 20120605, end: 20120612
  4. VENTOLIN [Concomitant]
     Indication: LOWER RESPIRATORY TRACT INFECTION
     Dosage: 100 MG, 4X/DAY
     Route: 048
     Dates: start: 20120605, end: 20120610
  5. PARACODIN BITARTRATE TAB [Concomitant]
     Indication: COUGH
     Dosage: 5 ML, 2X/DAY
     Route: 048
     Dates: start: 20120530, end: 20120605
  6. XALATAN [Concomitant]
     Indication: GLAUCOMA
     Dosage: UNK
     Route: 047
  7. VARENICLINE TARTRATE [Suspect]
     Indication: SMOKING CESSATION THERAPY
  8. CEFACLOR [Concomitant]
     Indication: LOWER RESPIRATORY TRACT INFECTION
     Dosage: 325 MG, 2X/DAY
     Route: 048
     Dates: start: 20120530, end: 20120606

REACTIONS (5)
  - MENTAL DISORDER [None]
  - VOMITING [None]
  - RETCHING [None]
  - NAUSEA [None]
  - ABDOMINAL DISCOMFORT [None]
